FAERS Safety Report 7728840 (Version 2)
Quarter: 2013Q1

REPORT INFORMATION
  Report Type: Spontaneous
  Country: US (occurrence: US)
  Receive Date: 20101222
  Receipt Date: 20130129
  Transmission Date: 20140127
  Serious: Yes (Other)
  Sender: FDA-Public Use
  Company Number: US-AMGEN-TCS415878

PATIENT
  Age: 56 Year
  Sex: Female

DRUGS (5)
  1. ENBREL [Suspect]
     Indication: RHEUMATOID ARTHRITIS
     Dosage: 50 MG, QWK
     Dates: start: 2003
  2. METHOTREXATE [Concomitant]
  3. REMICADE [Concomitant]
  4. ARAVA [Concomitant]
  5. HUMIRA [Concomitant]

REACTIONS (13)
  - Arthralgia [Not Recovered/Not Resolved]
  - Cyst [Recovered/Resolved]
  - Hypersensitivity [Unknown]
  - Therapeutic response decreased [Recovered/Resolved]
  - Dysgeusia [Not Recovered/Not Resolved]
  - Fatigue [Not Recovered/Not Resolved]
  - Alopecia [Unknown]
  - Blood test abnormal [Unknown]
  - Hypersomnia [Not Recovered/Not Resolved]
  - Aphasia [Not Recovered/Not Resolved]
  - Memory impairment [Not Recovered/Not Resolved]
  - Headache [Unknown]
  - Pain [Not Recovered/Not Resolved]
